FAERS Safety Report 8775184 (Version 1)
Quarter: 2012Q4

REPORT INFORMATION
  Report Type: 
  Country: ES (occurrence: ES)
  Receive Date: 20120910
  Receipt Date: 20120910
  Transmission Date: 20130627
  Serious: Yes (Other)
  Sender: FDA-Public Use
  Company Number: ES-MERCK-1208ESP011614

PATIENT

DRUGS (2)
  1. TEMODAL [Suspect]
     Indication: GLIOBLASTOMA MULTIFORME
     Dosage: 75 mg/m2, qd
     Route: 048
  2. TEMODAL [Suspect]
     Dosage: 150-200 mg/m2, qd
     Route: 048

REACTIONS (1)
  - Blood disorder [Unknown]
